FAERS Safety Report 6612707-6 (Version None)
Quarter: 2010Q1

REPORT INFORMATION
  Report Type: 
  Country: None (occurrence: None)
  Receive Date: 20100303
  Receipt Date: 20100215
  Transmission Date: 20100710
  Serious: No
  Sender: FDA-Public Use
  Company Number: US-BAYER-201011086NA

PATIENT

DRUGS (1)
  1. MAGNEVIST [Suspect]
     Indication: ARTHROGRAM
     Dosage: TOTAL DAILY DOSE: 2 ML  UNIT DOSE: 15 ML
     Dates: start: 20091223, end: 20091223

REACTIONS (3)
  - HYPERHIDROSIS [None]
  - HYPOTENSION [None]
  - NAUSEA [None]
